FAERS Safety Report 20725537 (Version 4)
Quarter: 2023Q1

REPORT INFORMATION
  Report Type: Report from Study
  Country: US (occurrence: US)
  Receive Date: 20220419
  Receipt Date: 20230109
  Transmission Date: 20230418
  Serious: Yes (Hospitalization, Other)
  Sender: FDA-Public Use
  Company Number: US-ABBVIE-22K-163-4330983-00

PATIENT
  Sex: Female
  Weight: 71 kg

DRUGS (14)
  1. RINVOQ [Suspect]
     Active Substance: UPADACITINIB
     Indication: Rheumatoid arthritis
     Dosage: 15 MILLIGRAM, FIRST ADMIN DATE 2022
     Route: 048
  2. RINVOQ [Suspect]
     Active Substance: UPADACITINIB
     Indication: Rheumatoid arthritis
     Route: 048
  3. OMEPRAZOLE [Concomitant]
     Active Substance: OMEPRAZOLE
     Indication: Product used for unknown indication
  4. MODERNA COVID-19 VACCINE [Concomitant]
     Active Substance: ELASOMERAN
     Indication: COVID-19 immunisation
     Dosage: 1ST DOSE
     Route: 030
  5. MODERNA COVID-19 VACCINE [Concomitant]
     Active Substance: ELASOMERAN
     Indication: COVID-19 immunisation
     Dosage: 2ND DOSE
     Route: 030
  6. MODERNA COVID-19 VACCINE [Concomitant]
     Active Substance: ELASOMERAN
     Indication: COVID-19 immunisation
     Dosage: BOOSTER DOSE, ONCE
     Route: 030
  7. FOLIC ACID [Concomitant]
     Active Substance: FOLIC ACID
     Indication: Vitamin supplementation
  8. BUPROPION [Concomitant]
     Active Substance: BUPROPION
     Indication: Antidepressant therapy
  9. SINGULAIR [Concomitant]
     Active Substance: MONTELUKAST SODIUM
     Indication: Respiration abnormal
  10. METFORMIN [Concomitant]
     Active Substance: METFORMIN HYDROCHLORIDE
     Indication: Diabetes mellitus
  11. SEROQUEL [Concomitant]
     Active Substance: QUETIAPINE FUMARATE
     Indication: Sleep disorder therapy
  12. ATORVASTATIN [Concomitant]
     Active Substance: ATORVASTATIN
     Indication: Blood cholesterol
  13. VALSARTAN [Concomitant]
     Active Substance: VALSARTAN
     Indication: Blood pressure measurement
  14. VITAMIN D [Concomitant]
     Active Substance: VITAMIN D NOS
     Indication: Vitamin supplementation

REACTIONS (19)
  - Pharyngo-oesophageal diverticulum [Recovering/Resolving]
  - Dysphagia [Recovering/Resolving]
  - Pharyngeal operation [Recovered/Resolved]
  - Cataract [Recovered/Resolved]
  - Sinusitis [Recovering/Resolving]
  - COVID-19 [Recovering/Resolving]
  - Bedridden [Unknown]
  - Procedural headache [Unknown]
  - Sinus disorder [Recovering/Resolving]
  - Hypophagia [Unknown]
  - Adverse drug reaction [Unknown]
  - Sleep disorder [Not Recovered/Not Resolved]
  - Hypersensitivity [Recovering/Resolving]
  - Rhinorrhoea [Recovering/Resolving]
  - Allergic cough [Recovering/Resolving]
  - Weight decreased [Recovered/Resolved]
  - Taste disorder [Recovering/Resolving]
  - Rheumatoid arthritis [Recovering/Resolving]
  - Pain [Recovering/Resolving]

NARRATIVE: CASE EVENT DATE: 20210101
